FAERS Safety Report 11113451 (Version 1)
Quarter: 2015Q2

REPORT INFORMATION
  Report Type: Spontaneous
  Country: US (occurrence: US)
  Receive Date: 20150514
  Receipt Date: 20150514
  Transmission Date: 20150821
  Serious: No
  Sender: FDA-Public Use
  Company Number: US-VIVUS-2015V1000083

PATIENT
  Sex: Female

DRUGS (1)
  1. QSYMIA [Suspect]
     Active Substance: PHENTERMINE HYDROCHLORIDE\TOPIRAMATE
     Indication: WEIGHT DECREASED
     Route: 048

REACTIONS (7)
  - Diplopia [Unknown]
  - Insomnia [Unknown]
  - Dizziness [Unknown]
  - Paraesthesia [Unknown]
  - Heart rate increased [Unknown]
  - Mood swings [Unknown]
  - Vision blurred [Unknown]
